FAERS Safety Report 8964632 (Version 2)
Quarter: 2012Q4

REPORT INFORMATION
  Report Type: 
  Country: JP (occurrence: JP)
  Receive Date: 20121214
  Receipt Date: 20121224
  Transmission Date: 20130627
  Serious: Yes (Hospitalization, Other)
  Sender: FDA-Public Use
  Company Number: JP-BRISTOL-MYERS SQUIBB COMPANY-17201229

PATIENT
  Age: 39 Year
  Sex: Female

DRUGS (1)
  1. ABILIFY TABS [Suspect]
     Indication: SCHIZOPHRENIA
     Dosage: Rg2:6mg/dy
Rg3:3mg/dy
Rg4:30mg/dy
     Route: 048

REACTIONS (4)
  - Abnormal behaviour [Recovering/Resolving]
  - Drug ineffective [Unknown]
  - Abortion [Unknown]
  - Pregnancy [Recovered/Resolved]
